FAERS Safety Report 4975668-1 (Version None)
Quarter: 2006Q2

REPORT INFORMATION
  Report Type: 
  Country: None (occurrence: None)
  Receive Date: 20060411
  Receipt Date: 20060404
  Transmission Date: 20061013
  Serious: Yes (Life-Threatening, Hospitalization)
  Sender: FDA-Public Use
  Company Number: HQWYE335915MAR06

PATIENT
  Age: 68 Year
  Sex: Male
  Weight: 67.19 kg

DRUGS (5)
  1. RAPAMUNE [Suspect]
     Indication: PROPHYLAXIS AGAINST TRANSPLANT REJECTION
     Dosage: 2 MG 1X PER 1 DAY, ORAL
     Route: 048
     Dates: start: 20051212, end: 20060201
  2. CELLCEPT [Concomitant]
  3. DIFLUCAN [Concomitant]
  4. BACTRIM [Concomitant]
  5. VALCYTE [Concomitant]

REACTIONS (15)
  - ABDOMINAL ADHESIONS [None]
  - BACTERIAL INFECTION [None]
  - CHOLELITHIASIS [None]
  - COLITIS [None]
  - CROHN'S DISEASE [None]
  - DYSPHAGIA [None]
  - ENTEROCOLITIS HAEMORRHAGIC [None]
  - ESCHERICHIA SEPSIS [None]
  - ESCHERICHIA URINARY TRACT INFECTION [None]
  - GALLBLADDER DISORDER [None]
  - GALLBLADDER OEDEMA [None]
  - HAEMOGLOBIN DECREASED [None]
  - METABOLIC ACIDOSIS [None]
  - RENAL FAILURE ACUTE [None]
  - SEPTIC SHOCK [None]
